FAERS Safety Report 8346309-0 (Version None)
Quarter: 2012Q2

REPORT INFORMATION
  Report Type: 
  Country: None (occurrence: None)
  Receive Date: 20120509
  Receipt Date: 20120321
  Transmission Date: 20120825
  Serious: No
  Sender: FDA-Public Use
  Company Number: US-COVIDIEN/TYCO HEALTHCARE/MALLINCKRODT-T201200614

PATIENT
  Sex: Female

DRUGS (3)
  1. PENNSAID [Suspect]
     Indication: OSTEOARTHRITIS
     Dosage: 5 GTT, QID
     Route: 061
     Dates: start: 20120118, end: 20120121
  2. METOPROLOL TARTRATE [Concomitant]
     Indication: BLOOD PRESSURE
     Dosage: 25 MG, QD
     Route: 048
  3. PENNSAID [Suspect]
     Indication: ARTHRALGIA

REACTIONS (4)
  - FLUSHING [None]
  - FEELING ABNORMAL [None]
  - INTENTIONAL DRUG MISUSE [None]
  - RASH [None]
